FAERS Safety Report 20872739 (Version 2)
Quarter: 2022Q2

REPORT INFORMATION
  Report Type: Spontaneous
  Country: AR (occurrence: AR)
  Receive Date: 20220525
  Receipt Date: 20220630
  Transmission Date: 20220721
  Serious: No
  Sender: FDA-Public Use
  Company Number: AR-PFIZER INC-202200661642

PATIENT
  Age: 17 Year
  Sex: Female

DRUGS (1)
  1. GENOTROPIN [Suspect]
     Active Substance: SOMATROPIN
     Indication: Short stature
     Dosage: 1 TO 1.4 MG, 7 TIMES PER WEEK
     Dates: start: 20170818

REACTIONS (2)
  - Drug dose omission by device [Unknown]
  - Syringe issue [Unknown]
